FAERS Safety Report 7568406-X (Version None)
Quarter: 2011Q2

REPORT INFORMATION
  Report Type: 
  Country: None (occurrence: None)
  Receive Date: 20110617
  Receipt Date: 20110607
  Transmission Date: 20111010
  Serious: Yes (Other)
  Sender: FDA-Public Use
  Company Number: ACO_25123_2011

PATIENT
  Age: 50 Year
  Sex: Female
  Weight: 61.2 kg

DRUGS (9)
  1. PROZAC [Concomitant]
  2. DIOVAN [Concomitant]
  3. BACLOFEN [Concomitant]
  4. NALTREXONE HYDROCHLORIDE [Concomitant]
  5. OMEPRAZOLE [Concomitant]
  6. NEURONTIN [Concomitant]
  7. AMPYRA [Suspect]
     Indication: GAIT DISTURBANCE
     Dosage: 10 MG, BID, ORAL
     Route: 048
     Dates: start: 20110513, end: 20110513
  8. ERGOCALCIFEROL [Concomitant]
  9. TOPAMAX (TOPIRMATE) [Concomitant]

REACTIONS (3)
  - CONVULSION [None]
  - FEELING ABNORMAL [None]
  - HANGOVER [None]
